FAERS Safety Report 5792702-X (Version None)
Quarter: 2008Q2

REPORT INFORMATION
  Report Type: 
  Country: None (occurrence: None)
  Receive Date: 20080624
  Receipt Date: 20080612
  Transmission Date: 20081010
  Serious: Yes (Death, Life-Threatening, Hospitalization, Other)
  Sender: FDA-Public Use
  Company Number: 49387

PATIENT
  Age: 66 Year
  Sex: Male

DRUGS (7)
  1. CYCLOSPORINE [Suspect]
     Indication: HEART TRANSPLANT
     Dosage: 150MG DAILY
  2. METHYLPREDNISOLONE [Suspect]
     Dosage: 500MG /IV
     Route: 042
  3. PROPOFOL [Concomitant]
  4. METHYLPREDNISOLONE [Concomitant]
  5. CYCLOSPORINE [Concomitant]
  6. COLCHICINE [Concomitant]
  7. SIMVASTATIN [Concomitant]

REACTIONS (13)
  - DIASTOLIC DYSFUNCTION [None]
  - DRUG INEFFECTIVE [None]
  - DYSSTASIA [None]
  - GAIT DISTURBANCE [None]
  - HAEMODIALYSIS [None]
  - MUSCLE NECROSIS [None]
  - MYOPATHY TOXIC [None]
  - PNEUMONIA [None]
  - RESPIRATORY DISTRESS [None]
  - RHABDOMYOLYSIS [None]
  - SEPTIC SHOCK [None]
  - URINARY CASTS [None]
  - WEIGHT DECREASED [None]
